FAERS Safety Report 5723729-1 (Version None)
Quarter: 2008Q2

REPORT INFORMATION
  Report Type: 
  Country: None (occurrence: None)
  Receive Date: 20080429
  Receipt Date: 20080429
  Transmission Date: 20081010
  Serious: Yes (Hospitalization)
  Sender: FDA-Public Use
  Company Number: None

PATIENT
  Age: 81 Year
  Sex: Male
  Weight: 74.39 kg

DRUGS (1)
  1. LINEZOLID [Suspect]
     Dosage: 600  BID  IV
     Route: 042
     Dates: start: 20071010, end: 20071016

REACTIONS (7)
  - CARDIAC FAILURE CONGESTIVE [None]
  - CELLULITIS [None]
  - CONDITION AGGRAVATED [None]
  - PLEURAL EFFUSION [None]
  - RENAL FAILURE CHRONIC [None]
  - THROMBOCYTOPENIA [None]
  - URINARY TRACT INFECTION STAPHYLOCOCCAL [None]
